FAERS Safety Report 9007441 (Version 2)
Quarter: 2013Q1

REPORT INFORMATION
  Report Type: Report from Study
  Country: DE (occurrence: DE)
  Receive Date: 20130110
  Receipt Date: 20130131
  Transmission Date: 20140127
  Serious: Yes (Hospitalization, Other)
  Sender: FDA-Public Use
  Company Number: DE-TEVA-379132GER

PATIENT
  Age: 55 None
  Sex: Female
  Weight: 80 kg

DRUGS (18)
  1. MYOCET [Suspect]
     Indication: BREAST CANCER
     Route: 042
     Dates: start: 20121001, end: 20130103
  2. MYOCET [Suspect]
     Route: 042
     Dates: start: 20130117
  3. PACLITAXEL [Suspect]
     Indication: BREAST CANCER
     Route: 042
     Dates: start: 20121001, end: 20130103
  4. PACLITAXEL [Suspect]
     Route: 042
     Dates: start: 20130117
  5. CARBOPLATIN [Suspect]
     Indication: BREAST CANCER
     Dosage: AUC 1.1
     Route: 042
     Dates: start: 20121001, end: 20130103
  6. CARBOPLATIN [Suspect]
     Dosage: AUC 1.1
     Route: 042
     Dates: start: 20130117
  7. BEVACIZUMAB [Suspect]
     Indication: BREAST CANCER
     Route: 042
     Dates: start: 20121001, end: 20130103
  8. LAMOTRIGINE [Concomitant]
     Dosage: 550 MILLIGRAM DAILY;
  9. VOTUM 10 [Concomitant]
  10. L-THYROXIN [Concomitant]
  11. OMEPRAZOLE [Concomitant]
     Dates: start: 20121015
  12. HCT [Concomitant]
  13. CLEXANE [Concomitant]
     Dosage: .4 MILLIGRAM DAILY;
     Dates: start: 20121229, end: 20130106
  14. FILGRASTIM [Concomitant]
     Dosage: 48000000 IU (INTERNATIONAL UNIT) DAILY;
     Dates: start: 20121114
  15. FILGRASTIM [Concomitant]
     Dates: start: 20121116, end: 20121117
  16. FILGRASTIM [Concomitant]
     Dates: start: 20121106, end: 20121107
  17. FILGRASTIM [Concomitant]
     Dates: start: 20121130, end: 20121130
  18. FILGRASTIM [Concomitant]
     Dates: start: 20121206, end: 20121206

REACTIONS (3)
  - Osteitis [Recovered/Resolved]
  - Periodontitis [Recovered/Resolved]
  - Tooth abscess [Recovered/Resolved]
